FAERS Safety Report 6364247-X (Version None)
Quarter: 2009Q3

REPORT INFORMATION
  Report Type: 
  Country: None (occurrence: None)
  Receive Date: 20090919
  Receipt Date: 20090717
  Transmission Date: 20100115
  Serious: Yes (Hospitalization, Other)
  Sender: FDA-Public Use
  Company Number: US-ABBOTT-09P-163-0576652-00

PATIENT
  Sex: Female
  Weight: 78.088 kg

DRUGS (14)
  1. HUMIRA [Suspect]
     Indication: RHEUMATOID ARTHRITIS
     Dates: start: 20090313, end: 20090403
  2. ACTOS [Concomitant]
     Indication: RHEUMATOID ARTHRITIS
     Route: 058
  3. GEMFIBROZIL [Concomitant]
     Indication: DRUG USE FOR UNKNOWN INDICATION
     Route: 048
  4. GLIPIZIDE [Concomitant]
     Indication: DRUG USE FOR UNKNOWN INDICATION
  5. PILOCARPINE HYDROCHLORIDE [Concomitant]
     Indication: DRUG USE FOR UNKNOWN INDICATION
     Route: 048
  6. FOSAMAX [Concomitant]
     Indication: DRUG USE FOR UNKNOWN INDICATION
  7. VITAMIN D [Concomitant]
     Indication: DRUG USE FOR UNKNOWN INDICATION
     Dosage: 50,000 INTERNATIONAL UNITS EVERY FRIDAY
  8. HYDROCODONE [Concomitant]
     Indication: DRUG USE FOR UNKNOWN INDICATION
     Dosage: 5/500
  9. ALBUTEROL NEBULIZERS [Concomitant]
     Indication: DRUG USE FOR UNKNOWN INDICATION
  10. ASCORBIC ACID [Concomitant]
     Indication: DRUG USE FOR UNKNOWN INDICATION
  11. FISH OIL [Concomitant]
     Indication: DRUG USE FOR UNKNOWN INDICATION
  12. FOLIC ACID [Concomitant]
     Indication: DRUG USE FOR UNKNOWN INDICATION
  13. ZOSTRIX [Concomitant]
     Indication: DRUG USE FOR UNKNOWN INDICATION
     Dosage: TO FEET EVERY DAY
  14. STOMATITIS SOLUTION [Concomitant]
     Indication: DRUG USE FOR UNKNOWN INDICATION

REACTIONS (8)
  - DYSPHAGIA [None]
  - EPISTAXIS [None]
  - FATIGUE [None]
  - HAEMATEMESIS [None]
  - MOUTH ULCERATION [None]
  - PANCYTOPENIA [None]
  - PYREXIA [None]
  - WEIGHT DECREASED [None]
